FAERS Safety Report 20213109 (Version 3)
Quarter: 2022Q2

REPORT INFORMATION
  Report Type: Spontaneous
  Country: US (occurrence: US)
  Receive Date: 20211221
  Receipt Date: 20220408
  Transmission Date: 20220721
  Serious: No
  Sender: FDA-Public Use
  Company Number: US-SANOFI-00899758

PATIENT
  Age: 69 Year
  Sex: Male

DRUGS (1)
  1. DUPIXENT [Suspect]
     Active Substance: DUPILUMAB
     Indication: Asthma
     Dosage: 300 MG, QOW
     Dates: start: 20211006

REACTIONS (2)
  - Therapeutic response decreased [Unknown]
  - Product use issue [Unknown]

NARRATIVE: CASE EVENT DATE: 20211006
